FAERS Safety Report 17281082 (Version 1)
Quarter: 2020Q1

REPORT INFORMATION
  Report Type: Spontaneous
  Country: FR (occurrence: FR)
  Receive Date: 20200117
  Receipt Date: 20200117
  Transmission Date: 20200409
  Serious: Yes (Hospitalization)
  Sender: FDA-Public Use
  Company Number: FR-TEVA-2020-FR-1168062

PATIENT
  Age: 42 Year
  Sex: Female
  Weight: 61 kg

DRUGS (2)
  1. VERATRAN 5 MG, COMPRIM? [Suspect]
     Active Substance: CLOTIAZEPAM
     Indication: SLEEP DISORDER
     Dosage: 6 DOSAGE FORMS 1 DAYS
     Route: 048
     Dates: start: 2017, end: 20190930
  2. TRAMADOL (CHLORHYDRATE DE) [Suspect]
     Active Substance: TRAMADOL HYDROCHLORIDE
     Indication: POSTOPERATIVE ANALGESIA
     Dosage: 450 MG 1 DAYS
     Route: 048
     Dates: start: 2013, end: 20190930

REACTIONS (2)
  - Drug dependence [Recovered/Resolved]
  - Drug withdrawal syndrome [Recovered/Resolved]

NARRATIVE: CASE EVENT DATE: 2013
